FAERS Safety Report 17586277 (Version 6)
Quarter: 2021Q4

REPORT INFORMATION
  Report Type: Spontaneous
  Country: DE (occurrence: None)
  Receive Date: 20200326
  Receipt Date: 20211231
  Transmission Date: 20220303
  Serious: Yes (Other)
  Sender: FDA-Public Use
  Company Number: 2020SE37583

PATIENT
  Age: 77 Year
  Sex: Female
  Weight: 72.7 kg

DRUGS (19)
  1. FULVESTRANT [Suspect]
     Active Substance: FULVESTRANT
     Indication: Breast cancer metastatic
     Dosage: 500 MG, Q2W (DAILY DOSE), EVERY TWO WEEKS
     Route: 030
     Dates: start: 20191230, end: 20200126
  2. FULVESTRANT [Suspect]
     Active Substance: FULVESTRANT
     Indication: Breast cancer metastatic
     Dosage: 500 MG, Q2W (DAILY DOSE), EVERY TWO WEEKS
     Route: 030
     Dates: start: 20191230, end: 20200126
  3. FULVESTRANT [Suspect]
     Active Substance: FULVESTRANT
     Indication: Breast cancer
     Dosage: 500 MG, Q2W (DAILY DOSE), EVERY TWO WEEKS
     Route: 030
     Dates: start: 20191230, end: 20200126
  4. FULVESTRANT [Suspect]
     Active Substance: FULVESTRANT
     Indication: Breast cancer metastatic
     Dosage: 500 MG, Q4W (DAILY DOSE), EVERY FOUR WEEKS
     Route: 030
     Dates: start: 20200127
  5. FULVESTRANT [Suspect]
     Active Substance: FULVESTRANT
     Indication: Breast cancer metastatic
     Dosage: 500 MG, Q4W (DAILY DOSE), EVERY FOUR WEEKS
     Route: 030
     Dates: start: 20200127
  6. FULVESTRANT [Suspect]
     Active Substance: FULVESTRANT
     Indication: Breast cancer
     Dosage: 500 MG, Q4W (DAILY DOSE), EVERY FOUR WEEKS
     Route: 030
     Dates: start: 20200127
  7. KISQALI [Suspect]
     Active Substance: RIBOCICLIB
     Indication: Product used for unknown indication
     Dosage: 21 DAYS INTAKE, 7 DAYS PAUSE
     Route: 048
     Dates: start: 20200127, end: 20200223
  8. KISQALI [Suspect]
     Active Substance: RIBOCICLIB
     Indication: Product used for unknown indication
     Dosage: 21 DAYS INTAKE, 7 DAYS PAUSE
     Route: 048
     Dates: start: 20201217, end: 20210201
  9. KISQALI [Suspect]
     Active Substance: RIBOCICLIB
     Indication: Product used for unknown indication
     Dosage: 21 DAYS INTAKE, 7 DAYS PAUSE
     Route: 048
     Dates: start: 20210204
  10. KISQALI [Suspect]
     Active Substance: RIBOCICLIB
     Indication: Product used for unknown indication
     Dosage: 21 DAYS INTAKE, 7 DAYS PAUSE
     Route: 048
     Dates: start: 20200225, end: 20200518
  11. KISQALI [Suspect]
     Active Substance: RIBOCICLIB
     Indication: Product used for unknown indication
     Dosage: 21 DAYS INTAKE, 7 DAYS PAUSE
     Route: 048
     Dates: start: 20200526, end: 20201215
  12. ZOLEDRONIC ACID [Suspect]
     Active Substance: ZOLEDRONIC ACID
     Indication: Product used for unknown indication
     Route: 042
     Dates: start: 20191206, end: 20200817
  13. RAMIPRIL [Concomitant]
     Active Substance: RAMIPRIL
     Indication: Hypertension
     Dosage: 5 MG, QD
     Route: 065
     Dates: start: 1990
  14. BISOPROLOL [Concomitant]
     Active Substance: BISOPROLOL
     Indication: Hypertension
     Dosage: 5 MG, BID
     Route: 065
     Dates: start: 1990
  15. BISOPROLOL [Concomitant]
     Active Substance: BISOPROLOL
     Indication: Hypertension
     Dosage: 5 MG, BID
     Route: 065
     Dates: start: 1990
  16. LERCANIDIPINE [Concomitant]
     Active Substance: LERCANIDIPINE
     Indication: Hypertension
     Dosage: 1 DF (18,88 MG) QD (MORNING)
     Route: 065
     Dates: start: 20200303
  17. LERCANIDIPINE [Concomitant]
     Active Substance: LERCANIDIPINE
     Indication: Hypertension
     Dosage: 1 DF (18,88 MG) QD (MORNING)
     Route: 065
     Dates: start: 20200303
  18. HYDROCHLOROTHIAZIDE\RAMIPRIL [Concomitant]
     Active Substance: HYDROCHLOROTHIAZIDE\RAMIPRIL
     Indication: Hypertension
     Dosage: 1 DF (5/25 MG), QD
     Route: 065
     Dates: start: 1990
  19. DENOSUMAB [Concomitant]
     Active Substance: DENOSUMAB
     Indication: Product used for unknown indication
     Dosage: 120 MG, QMO (EVERY FOUR WEEKS)
     Route: 065
     Dates: start: 20200914

REACTIONS (7)
  - Blood pressure increased [Recovering/Resolving]
  - Diabetes mellitus [Not Recovered/Not Resolved]
  - Blood creatinine increased [Not Recovered/Not Resolved]
  - Dyspnoea [Not Recovered/Not Resolved]
  - Pruritus [Recovered/Resolved]
  - Anaemia [Recovered/Resolved]
  - Eastern Cooperative Oncology Group performance status worsened [Not Recovered/Not Resolved]

NARRATIVE: CASE EVENT DATE: 20200224
